FAERS Safety Report 16382728 (Version 8)
Quarter: 2020Q2

REPORT INFORMATION
  Report Type: Report from Study
  Country: US (occurrence: US)
  Receive Date: 20190603
  Receipt Date: 20200619
  Transmission Date: 20200713
  Serious: No
  Sender: FDA-Public Use
  Company Number: PHEH2019US023449

PATIENT
  Age: 52 Year
  Sex: Female

DRUGS (2)
  1. COSENTYX [Suspect]
     Active Substance: SECUKINUMAB
     Indication: ANKYLOSING SPONDYLITIS
     Dosage: UNK
     Route: 065
  2. COSENTYX [Suspect]
     Active Substance: SECUKINUMAB
     Dosage: UNK
     Route: 065

REACTIONS (14)
  - Concomitant disease aggravated [Unknown]
  - Feeling abnormal [Unknown]
  - Headache [Unknown]
  - Crepitations [Unknown]
  - Throat irritation [Unknown]
  - Gait disturbance [Unknown]
  - Spinal pain [Unknown]
  - Oropharyngeal pain [Unknown]
  - Malaise [Unknown]
  - Sinus disorder [Unknown]
  - Ageusia [Unknown]
  - Anosmia [Unknown]
  - Pruritus [Unknown]
  - Rash [Unknown]
